FAERS Safety Report 9178024 (Version 1)
Quarter: 2013Q1

REPORT INFORMATION
  Report Type: Spontaneous
  Country: US (occurrence: None)
  Receive Date: 20130315
  Receipt Date: 20130315
  Transmission Date: 20140127
  Serious: Yes (Hospitalization)
  Sender: FDA-Public Use
  Company Number: B0874296A

PATIENT
  Age: 17 Year
  Sex: Female

DRUGS (1)
  1. BUPROPION HYDROCHLORIDE TABLET-CONTROLLED RELEASE (GENERIC) (BUPROPION HYDROCHLORIDE) [Suspect]
     Route: 048

REACTIONS (9)
  - Overdose [None]
  - Suicide attempt [None]
  - Convulsion [None]
  - Unresponsive to stimuli [None]
  - Hypokalaemia [None]
  - Metabolic acidosis [None]
  - Hyperchloraemia [None]
  - Hypocalcaemia [None]
  - Hypoglycaemia [None]
